FAERS Safety Report 8079324-5 (Version None)
Quarter: 2012Q1

REPORT INFORMATION
  Report Type: 
  Country: None (occurrence: None)
  Receive Date: 20120128
  Receipt Date: 20110821
  Transmission Date: 20120608
  Serious: No
  Sender: FDA-Public Use
  Company Number: US-ABBOTT-11P-163-0848379-00

PATIENT
  Age: 76 Year
  Sex: Female

DRUGS (7)
  1. CITRACAL [Concomitant]
     Indication: PRODUCT USED FOR UNKNOWN INDICATION
  2. PERCOCET [Concomitant]
     Indication: PRODUCT USED FOR UNKNOWN INDICATION
     Dosage: 7.5/325, 1 EVERY 4-6 HOURS PRN
  3. MOBIC [Concomitant]
     Indication: INFLAMMATION
     Dosage: AT BEDTIME
  4. FOLIC ACID [Concomitant]
     Indication: PRODUCT USED FOR UNKNOWN INDICATION
  5. OMEPRAZOLE [Concomitant]
     Indication: GASTROOESOPHAGEAL REFLUX DISEASE
  6. METHOTREXATE [Concomitant]
     Indication: PRODUCT USED FOR UNKNOWN INDICATION
  7. HUMIRA [Suspect]
     Indication: OSTEOARTHRITIS
     Dates: start: 20110812

REACTIONS (2)
  - HEADACHE [None]
  - HYPOAESTHESIA [None]
